FAERS Safety Report 9929511 (Version 2)
Quarter: 2014Q1

REPORT INFORMATION
  Report Type: Report from Study
  Country: US (occurrence: US)
  Receive Date: 20140227
  Receipt Date: 20140313
  Transmission Date: 20141002
  Serious: Yes (Hospitalization)
  Sender: FDA-Public Use
  Company Number: PHEH2014US003373

PATIENT
  Age: 54 Year
  Sex: Female

DRUGS (8)
  1. TASIGNA [Suspect]
     Indication: CHRONIC MYELOID LEUKAEMIA
     Dosage: 300 MG, BID
     Route: 048
     Dates: start: 20140103, end: 20140220
  2. CYMBALTA [Concomitant]
     Dosage: 20 MG, UNK
  3. ACCUPRIL [Concomitant]
     Dosage: 10 MG, UNK
  4. HYDROCHLOROTH [Concomitant]
     Dosage: 25 MG, UNK
  5. ALBUTEROL [Concomitant]
     Dosage: 90 UG, UNK
  6. ADVAIR DISKUS [Concomitant]
  7. NEXIUM 1-2-3 [Concomitant]
     Dosage: 40 MG, UNK
  8. XYZAL [Concomitant]

REACTIONS (4)
  - Pancreatitis [Recovered/Resolved]
  - Pyrexia [Recovered/Resolved]
  - Pain [Recovered/Resolved]
  - Lipase increased [Recovered/Resolved]
